FAERS Safety Report 7382985-7 (Version None)
Quarter: 2011Q1

REPORT INFORMATION
  Report Type: 
  Country: None (occurrence: None)
  Receive Date: 20110328
  Receipt Date: 20110328
  Transmission Date: 20110831
  Serious: Yes (Other)
  Sender: FDA-Public Use
  Company Number: None

PATIENT
  Sex: Female
  Weight: 63.5036 kg

DRUGS (6)
  1. FENTANYL TRANS. SYSTEM 25 MCG/H EVERY 72 HRS. WATSON LAB COLONY, CA 92 [Suspect]
     Indication: LUMBAR SPINAL STENOSIS
     Dosage: 1 PATCH 25 MCG EVERY 72 HRS TRANSDERMAL
     Route: 062
     Dates: start: 20110312
  2. FENTANYL TRANS. SYSTEM 25 MCG/H EVERY 72 HRS. WATSON LAB COLONY, CA 92 [Suspect]
     Indication: COMPRESSION FRACTURE
     Dosage: 1 PATCH 25 MCG EVERY 72 HRS TRANSDERMAL
     Route: 062
     Dates: start: 20110312
  3. FENTANYL TRANS. SYSTEM 25 MCG/H EVERY 72 HRS. WATSON LAB COLONY, CA 92 [Suspect]
     Indication: LUMBAR SPINAL STENOSIS
     Dosage: 1 PATCH 25 MCG EVERY 72 HRS TRANSDERMAL
     Route: 062
     Dates: start: 20110308
  4. FENTANYL TRANS. SYSTEM 25 MCG/H EVERY 72 HRS. WATSON LAB COLONY, CA 92 [Suspect]
     Indication: COMPRESSION FRACTURE
     Dosage: 1 PATCH 25 MCG EVERY 72 HRS TRANSDERMAL
     Route: 062
     Dates: start: 20110308
  5. FENTANYL TRANS. SYSTEM 25 MCG/H EVERY 72 HRS. WATSON LAB COLONY, CA 92 [Suspect]
     Indication: LUMBAR SPINAL STENOSIS
     Dosage: 1 PATCH 25 MCG EVERY 72 HRS TRANSDERMAL
     Route: 062
     Dates: start: 20110316
  6. FENTANYL TRANS. SYSTEM 25 MCG/H EVERY 72 HRS. WATSON LAB COLONY, CA 92 [Suspect]
     Indication: COMPRESSION FRACTURE
     Dosage: 1 PATCH 25 MCG EVERY 72 HRS TRANSDERMAL
     Route: 062
     Dates: start: 20110316

REACTIONS (3)
  - PRURITUS GENERALISED [None]
  - APPLICATION SITE REACTION [None]
  - PRODUCT FORMULATION ISSUE [None]
